FAERS Safety Report 9716947 (Version 1)
Quarter: 2013Q4

REPORT INFORMATION
  Report Type: Spontaneous
  Country: US (occurrence: US)
  Receive Date: 20131127
  Receipt Date: 20131127
  Transmission Date: 20140711
  Serious: No
  Sender: FDA-Public Use
  Company Number: US-GILEAD-2009-0019999

PATIENT
  Age: 68 Year
  Sex: Female

DRUGS (16)
  1. LETAIRIS [Suspect]
     Indication: PULMONARY ARTERIAL HYPERTENSION
     Route: 048
     Dates: start: 20080916
  2. TYLENOL [Concomitant]
  3. IMITREX [Concomitant]
  4. DILAUDID [Concomitant]
  5. NORVASC [Concomitant]
  6. LYRICA [Concomitant]
  7. TOPROL [Concomitant]
  8. SYNTHROID [Concomitant]
  9. FUROSEMIDE [Concomitant]
  10. COZAAR [Concomitant]
  11. SUCRALFATE [Concomitant]
  12. NEXIUM [Concomitant]
  13. CLONAZEPAM [Concomitant]
  14. PROVIGIIL [Concomitant]
  15. ALLEGRA [Concomitant]
  16. ACIPHEX [Concomitant]

REACTIONS (1)
  - Nasal congestion [Unknown]
